FAERS Safety Report 10672484 (Version 1)
Quarter: 2014Q4

REPORT INFORMATION
  Report Type: Spontaneous
  Country: NO (occurrence: NO)
  Receive Date: 20141223
  Receipt Date: 20141223
  Transmission Date: 20150529
  Serious: Yes (Other)
  Sender: FDA-Public Use
  Company Number: NO-ELI_LILLY_AND_COMPANY-NO201412005352

PATIENT
  Age: 40 Year
  Sex: Male

DRUGS (3)
  1. PARALGIN FORTE                     /00116401/ [Concomitant]
     Dosage: UNK, UNKNOWN
     Route: 065
  2. VITAMIN D3 [Concomitant]
     Active Substance: CHOLECALCIFEROL
     Dosage: UNK, UNKNOWN
     Route: 065
  3. ZYPADHERA [Suspect]
     Active Substance: OLANZAPINE PAMOATE
     Indication: PRODUCT USED FOR UNKNOWN INDICATION
     Dosage: 405 MG, UNKNOWN
     Route: 030

REACTIONS (9)
  - Somnolence [Recovering/Resolving]
  - Confusional state [Recovering/Resolving]
  - Sedation [Recovering/Resolving]
  - Extrapyramidal disorder [Recovering/Resolving]
  - Lethargy [Recovering/Resolving]
  - Akathisia [Recovering/Resolving]
  - Nausea [Recovering/Resolving]
  - Pallor [Recovering/Resolving]
  - Dizziness [Recovering/Resolving]

NARRATIVE: CASE EVENT DATE: 20141113
